FAERS Safety Report 6848681-7 (Version None)
Quarter: 2010Q3

REPORT INFORMATION
  Report Type: 
  Country: None (occurrence: None)
  Receive Date: 20100716
  Receipt Date: 20070906
  Transmission Date: 20110219
  Serious: Yes (Other)
  Sender: FDA-Public Use
  Company Number: US-PFIZER INC-2007074911

PATIENT
  Sex: Female
  Weight: 65.3 kg

DRUGS (2)
  1. CHANTIX [Suspect]
     Indication: SMOKING CESSATION THERAPY
     Dates: start: 20070801
  2. VITAMINS [Concomitant]

REACTIONS (5)
  - ARTHRALGIA [None]
  - DISORIENTATION [None]
  - MALAISE [None]
  - NAUSEA [None]
  - TONGUE DISORDER [None]
